FAERS Safety Report 7416656-5 (Version None)
Quarter: 2011Q2

REPORT INFORMATION
  Report Type: 
  Country: None (occurrence: None)
  Receive Date: 20110415
  Receipt Date: 20110406
  Transmission Date: 20111010
  Serious: Yes (Hospitalization)
  Sender: FDA-Public Use
  Company Number: US-BIOGENIDEC-2011BI008536

PATIENT
  Age: 58 Year
  Sex: Female
  Weight: 61 kg

DRUGS (9)
  1. DEPAKOTE [Concomitant]
     Route: 048
  2. NAPROXEN [Concomitant]
     Route: 048
  3. ARICEPT [Concomitant]
     Indication: PRODUCT USED FOR UNKNOWN INDICATION
     Route: 048
  4. AMITRIPTYLINE [Concomitant]
     Route: 048
  5. OXYBUTYNIN [Concomitant]
     Indication: PRODUCT USED FOR UNKNOWN INDICATION
     Route: 048
  6. ACETAMINOPHEN [Concomitant]
     Route: 048
  7. TYSABRI [Suspect]
     Indication: MULTIPLE SCLEROSIS
     Route: 042
     Dates: start: 20080612
  8. AMITRIPTYLINE [Concomitant]
     Route: 048
  9. GABAPENTIN [Concomitant]
     Indication: PRODUCT USED FOR UNKNOWN INDICATION
     Route: 048

REACTIONS (1)
  - UHTHOFF'S PHENOMENON [None]
